FAERS Safety Report 19083990 (Version 2)
Quarter: 2021Q2

REPORT INFORMATION
  Report Type: Spontaneous
  Country: CH (occurrence: CH)
  Receive Date: 20210401
  Receipt Date: 20210630
  Transmission Date: 20210717
  Serious: No
  Sender: FDA-Public Use
  Company Number: CH-PFIZER INC-2021292607

PATIENT
  Age: 48 Year
  Sex: Female
  Weight: 80 kg

DRUGS (1)
  1. SAYANA [Suspect]
     Active Substance: MEDROXYPROGESTERONE
     Indication: CONTRACEPTION
     Dosage: 0.65 ML, CYCLIC, 1X12 WEEKS
     Route: 058

REACTIONS (1)
  - Device occlusion [Unknown]
